FAERS Safety Report 8814969 (Version 1)
Quarter: 2012Q4

REPORT INFORMATION
  Report Type: 
  Country: US (occurrence: US)
  Receive Date: 20120928
  Receipt Date: 20120928
  Transmission Date: 20130627
  Serious: Yes (Other)
  Sender: FDA-Public Use
  Company Number: US-ROCHE-1128970

PATIENT
  Sex: Female

DRUGS (1)
  1. AVASTIN [Suspect]
     Indication: PRODUCT USED FOR UNKNOWN INDICATION

REACTIONS (3)
  - Eye infection [Unknown]
  - Blindness [Unknown]
  - Suspected transmission of an infectious agent via product [Unknown]
